FAERS Safety Report 5628614-1 (Version None)
Quarter: 2008Q1

REPORT INFORMATION
  Report Type: 
  Country: None (occurrence: None)
  Receive Date: 20080215
  Receipt Date: 20080208
  Transmission Date: 20080703
  Serious: Yes (Hospitalization, Other)
  Sender: FDA-Public Use
  Company Number: US-MERCK-0802USA02801

PATIENT
  Age: 63 Year
  Sex: Female

DRUGS (4)
  1. FOSAMAX [Suspect]
     Indication: OSTEOPOROSIS
     Route: 048
     Dates: start: 19980101
  2. ZETIA [Concomitant]
     Route: 048
  3. IMITREX [Concomitant]
     Route: 065
  4. CALTRATE + VITAMIN D [Concomitant]
     Route: 065

REACTIONS (1)
  - FEMUR FRACTURE [None]
